FAERS Safety Report 8101121-2 (Version None)
Quarter: 2012Q1

REPORT INFORMATION
  Report Type: 
  Country: None (occurrence: None)
  Receive Date: 20120129
  Receipt Date: 20110907
  Transmission Date: 20120608
  Serious: Yes (Other)
  Sender: FDA-Public Use
  Company Number: US-ABBOTT-11P-163-0852926-00

PATIENT
  Sex: Female
  Weight: 64.014 kg

DRUGS (3)
  1. HUMIRA [Suspect]
     Indication: RHEUMATOID ARTHRITIS
  2. HUMIRA [Suspect]
     Indication: FIBROMYALGIA
  3. HUMIRA [Suspect]
     Indication: OSTEOPOROSIS

REACTIONS (6)
  - COUGH [None]
  - INFLUENZA [None]
  - RESPIRATORY TRACT INFECTION VIRAL [None]
  - MALIGNANT MELANOMA [None]
  - CYSTITIS [None]
  - SCAR [None]
